FAERS Safety Report 10794067 (Version 1)
Quarter: 2015Q1

REPORT INFORMATION
  Report Type: Report from Study
  Country: US (occurrence: US)
  Receive Date: 20150213
  Receipt Date: 20150213
  Transmission Date: 20150721
  Serious: Yes (Other)
  Sender: FDA-Public Use
  Company Number: US-BIOGENIDEC-2015BI016383

PATIENT
  Age: 55 Year
  Sex: Female

DRUGS (1)
  1. TECFIDERA [Suspect]
     Active Substance: DIMETHYL FUMARATE
     Indication: MULTIPLE SCLEROSIS
     Route: 048
     Dates: start: 201406

REACTIONS (4)
  - Hepatomegaly [Unknown]
  - Polycystic liver disease [Unknown]
  - Abdominal pain upper [Unknown]
  - Haemorrhagic hepatic cyst [Unknown]

NARRATIVE: CASE EVENT DATE: 201412
